FAERS Safety Report 9314622 (Version 1)
Quarter: 2013Q2

REPORT INFORMATION
  Report Type: Spontaneous
  Country: GB (occurrence: GB)
  Receive Date: 20130529
  Receipt Date: 20130529
  Transmission Date: 20140414
  Serious: Yes (Disabling)
  Sender: FDA-Public Use
  Company Number: GB-TEVA-407922ISR

PATIENT
  Age: 43 Year
  Sex: Female
  Weight: 63.5 kg

DRUGS (5)
  1. METRONIDAZOLE [Suspect]
     Dosage: 1 DOSAGE FORMS DAILY; FOUR DAYS
     Dates: start: 20130429
  2. LEVOTHYROXINE [Concomitant]
     Dates: start: 20130115, end: 20130501
  3. ESTRADOT [Concomitant]
     Dates: start: 20130121, end: 20130319
  4. HYDROXOCOBALAMIN [Concomitant]
     Dates: start: 20130325, end: 20130326
  5. HYDROCORTISONE [Concomitant]
     Dates: start: 20130429, end: 20130506

REACTIONS (3)
  - Acute psychosis [Not Recovered/Not Resolved]
  - Feeling abnormal [Not Recovered/Not Resolved]
  - Psychotic disorder [Not Recovered/Not Resolved]
